FAERS Safety Report 5245377-2 (Version None)
Quarter: 2007Q1

REPORT INFORMATION
  Report Type: 
  Country: None (occurrence: None)
  Receive Date: 20070223
  Receipt Date: 20070214
  Transmission Date: 20070707
  Serious: Yes (Other)
  Sender: FDA-Public Use
  Company Number: PHBS2007BE02469

PATIENT
  Age: 78 Year
  Sex: Male

DRUGS (8)
  1. ZOMETA [Suspect]
     Indication: METASTASES TO BONE
     Dosage: 4 MG, MONTHLY
     Dates: start: 20050101, end: 20070101
  2. TEGRETOL [Concomitant]
     Indication: PAIN
     Route: 065
  3. TERAZOSIN HCL [Concomitant]
     Route: 065
  4. ASPIRIN [Concomitant]
     Dosage: 100 MG/D
     Route: 065
  5. NEXIUM [Concomitant]
     Route: 065
  6. LASIX [Concomitant]
     Route: 065
  7. ESTRACYT [Concomitant]
     Route: 065
     Dates: start: 20050101
  8. TAXOTERE [Concomitant]
     Dosage: UNK, 3 CURES
     Route: 065
     Dates: start: 20060501

REACTIONS (6)
  - BONE LESION [None]
  - MALIGNANT NEOPLASM PROGRESSION [None]
  - OSTEOMYELITIS [None]
  - OSTEONECROSIS [None]
  - PAIN [None]
  - WOUND DEBRIDEMENT [None]
